FAERS Safety Report 8729713 (Version 2)
Quarter: 2015Q2

REPORT INFORMATION
  Report Type: Report from Study
  Country: US (occurrence: US)
  Receive Date: 20120817
  Receipt Date: 20150629
  Transmission Date: 20150821
  Serious: Yes (Hospitalization)
  Sender: FDA-Public Use
  Company Number: US-ROCHE-1099836

PATIENT
  Age: 37 Year
  Sex: Male

DRUGS (12)
  1. SURFAK (UNITED STATES) [Concomitant]
     Dosage: DAILY
     Route: 048
  2. INDERAL [Concomitant]
     Active Substance: PROPRANOLOL HYDROCHLORIDE
     Route: 048
  3. XANAX [Concomitant]
     Active Substance: ALPRAZOLAM
     Route: 065
  4. ACTIVASE [Suspect]
     Active Substance: ALTEPLASE
     Indication: ACUTE MYOCARDIAL INFARCTION
     Route: 040
  5. MYLANTA (ALUMINUM HYDROXIDE/MAGNESIUM HYDROXIDE) [Concomitant]
     Dosage: 15 CC PRN
     Route: 048
  6. PROCARDIA (UNITED STATES) [Concomitant]
     Route: 048
  7. TYLENOL [Concomitant]
     Active Substance: ACETAMINOPHEN
     Route: 048
  8. LIDOCAINE. [Concomitant]
     Active Substance: LIDOCAINE
     Route: 040
  9. PHENERGAN [Concomitant]
     Active Substance: PROMETHAZINE HYDROCHLORIDE
     Route: 042
  10. ECOTRIN [Concomitant]
     Active Substance: ASPIRIN
     Route: 048
  11. NITROGLYCERINE [Concomitant]
     Active Substance: NITROGLYCERIN
     Route: 060
  12. ATROPINE [Concomitant]
     Active Substance: ATROPINE
     Route: 042

REACTIONS (6)
  - Chest pain [Recovered/Resolved]
  - Ventricular tachycardia [Unknown]
  - Ventricular extrasystoles [Unknown]
  - Arrhythmia [Unknown]
  - Supraventricular extrasystoles [Unknown]
  - Supraventricular tachycardia [Unknown]

NARRATIVE: CASE EVENT DATE: 19911118
